FAERS Safety Report 22354324 (Version 1)
Quarter: 2023Q2

REPORT INFORMATION
  Report Type: Report from Study
  Country: US (occurrence: US)
  Receive Date: 20230523
  Receipt Date: 20230523
  Transmission Date: 20230722
  Serious: Yes (Other)
  Sender: FDA-Public Use
  Company Number: US-002147023-NVSC2023US114059

PATIENT
  Sex: Female
  Weight: 62.585 kg

DRUGS (9)
  1. COSENTYX [Suspect]
     Active Substance: SECUKINUMAB
     Indication: Psoriasis
     Dosage: 150 MILLIGRAM PER MILLILITRE
     Route: 058
  2. COSENTYX [Suspect]
     Active Substance: SECUKINUMAB
     Dosage: 300 MG
     Route: 058
  3. LIDOCAINE [Suspect]
     Active Substance: LIDOCAINE
     Indication: Psoriasis
     Dosage: 1 % (LIDOCAINE 1%-EPINEPHRINE 1:100,000 INJECTION)
     Route: 065
  4. LIDOCAINE [Suspect]
     Active Substance: LIDOCAINE
     Dosage: 1 % (LIDOCAINE HCL 100M/10ML (1%) INJECTION SYRINGE)
     Route: 065
  5. CALCIUM [Suspect]
     Active Substance: CALCIUM
     Indication: Psoriasis
     Dosage: UNK (CALCIUM WITH VITAMIN D)
     Route: 065
  6. VITAMINS [Suspect]
     Active Substance: VITAMINS
     Indication: Psoriasis
     Dosage: UNK
     Route: 065
  7. VITAMIN C [Suspect]
     Active Substance: ASCORBIC ACID
     Indication: Psoriasis
     Dosage: 100 MG
     Route: 065
  8. ALCOHOL [Suspect]
     Active Substance: ALCOHOL
     Indication: Psoriasis
     Dosage: UNK
     Route: 065
  9. VITAMIN D NOS [Concomitant]
     Active Substance: VITAMIN D NOS
     Indication: Product used for unknown indication
     Dosage: UNK
     Route: 065

REACTIONS (10)
  - Squamous cell carcinoma of skin [Unknown]
  - Skin mass [Unknown]
  - Neoplasm skin [Unknown]
  - Arthralgia [Unknown]
  - Psoriasis [Unknown]
  - Papule [Unknown]
  - Skin exfoliation [Unknown]
  - Skin plaque [Unknown]
  - Drug ineffective [Unknown]
  - Product use in unapproved indication [Unknown]
